FAERS Safety Report 19301079 (Version 3)
Quarter: 2021Q2

REPORT INFORMATION
  Report Type: Spontaneous
  Country: CN (occurrence: CN)
  Receive Date: 20210525
  Receipt Date: 20210601
  Transmission Date: 20210717
  Serious: Yes (Hospitalization)
  Sender: FDA-Public Use
  Company Number: CN-TOPROL-2021000099

PATIENT
  Age: 58 Year
  Sex: Male
  Weight: 79 kg

DRUGS (1)
  1. BETALOC [Suspect]
     Active Substance: METOPROLOL
     Dosage: 7 TABLETS 4 BOARDS, AND ONE TABLET WAS TAKEN EVERY MORNING ON AN EMPTY STOMACH
     Route: 048
     Dates: start: 201810, end: 202105

REACTIONS (7)
  - Platelet count decreased [Unknown]
  - Dizziness [Unknown]
  - Nausea [Recovering/Resolving]
  - Abdominal distension [Unknown]
  - Flatulence [Unknown]
  - Abdominal pain upper [Recovering/Resolving]
  - Fatigue [Recovering/Resolving]

NARRATIVE: CASE EVENT DATE: 202105
